FAERS Safety Report 13518554 (Version 2)
Quarter: 2017Q2

REPORT INFORMATION
  Report Type: Report from Study
  Country: US (occurrence: US)
  Receive Date: 20170505
  Receipt Date: 20170508
  Transmission Date: 20170830
  Serious: Yes (Hospitalization)
  Sender: FDA-Public Use
  Company Number: US-ASTRAZENECA-2017SE37189

PATIENT
  Age: 867 Month
  Sex: Female

DRUGS (2)
  1. TAGRISSO [Suspect]
     Active Substance: OSIMERTINIB
     Indication: LUNG NEOPLASM MALIGNANT
     Route: 048
     Dates: start: 20170403
  2. XARELTO [Concomitant]
     Active Substance: RIVAROXABAN

REACTIONS (6)
  - Nausea [Unknown]
  - Dyspepsia [Unknown]
  - Fatigue [Unknown]
  - Hyperhidrosis [Unknown]
  - Diarrhoea [Unknown]
  - Pneumothorax [Unknown]

NARRATIVE: CASE EVENT DATE: 201704
